FAERS Safety Report 9909078 (Version 2)
Quarter: 2014Q1

REPORT INFORMATION
  Report Type: Spontaneous
  Country: GE (occurrence: GE)
  Receive Date: 20140219
  Receipt Date: 20140219
  Transmission Date: 20141002
  Serious: Yes (Death, Other)
  Sender: FDA-Public Use
  Company Number: GE-JNJFOC-20130702781

PATIENT
  Age: 54 Year
  Sex: Male
  Weight: 60 kg

DRUGS (6)
  1. ZYTIGA [Suspect]
     Indication: PROSTATE CANCER
     Route: 048
     Dates: start: 20121212
  2. DOCETAXEL [Suspect]
     Indication: PROSTATE CANCER
     Route: 065
  3. PREDNISONE [Concomitant]
     Indication: PROSTATE CANCER
     Route: 065
     Dates: start: 20120128, end: 20131215
  4. DEXAMETHASONE [Concomitant]
     Indication: PROSTATE CANCER
     Route: 065
     Dates: start: 20131215, end: 20140217
  5. PREDNISOLONE [Concomitant]
     Route: 048
     Dates: start: 20121212
  6. ZOLENDRONIC ACID [Concomitant]
     Indication: OSTEOPOROSIS
     Route: 065

REACTIONS (6)
  - Prostate cancer [Fatal]
  - Anaemia [Unknown]
  - Fatigue [Recovered/Resolved]
  - Prostatic specific antigen increased [Not Recovered/Not Resolved]
  - Decreased appetite [Unknown]
  - Peripheral sensory neuropathy [Recovered/Resolved]
